FAERS Safety Report 4432496-3 (Version None)
Quarter: 2004Q3

REPORT INFORMATION
  Report Type: 
  Country: None (occurrence: None)
  Receive Date: 20040820
  Receipt Date: 20040813
  Transmission Date: 20050211
  Serious: Yes (Death, Hospitalization)
  Sender: FDA-Public Use
  Company Number: 2004US000935

PATIENT
  Age: 23 Year
  Sex: Female
  Weight: 50 kg

DRUGS (5)
  1. PROGRAF [Suspect]
     Indication: HEART TRANSPLANT
     Dosage: SEE IMAGE
     Dates: start: 20030725
  2. PROGRAF [Suspect]
     Indication: HEART TRANSPLANT
     Dosage: SEE IMAGE
     Dates: start: 20030725
  3. PROGRAF [Suspect]
     Indication: HEART TRANSPLANT
     Dosage: SEE IMAGE
     Dates: start: 20031015
  4. PREDNISONE [Concomitant]
  5. CELLCEPT [Concomitant]

REACTIONS (3)
  - CARDIAC FAILURE CONGESTIVE [None]
  - HEART TRANSPLANT REJECTION [None]
  - TREATMENT NONCOMPLIANCE [None]
